FAERS Safety Report 7582576-9 (Version None)
Quarter: 2011Q2

REPORT INFORMATION
  Report Type: 
  Country: None (occurrence: None)
  Receive Date: 20110630
  Receipt Date: 20110622
  Transmission Date: 20111010
  Serious: Yes (Hospitalization)
  Sender: FDA-Public Use
  Company Number: PE-ASTELLAS-2011US003355

PATIENT
  Sex: Female

DRUGS (2)
  1. TARCEVA [Suspect]
     Dosage: UNK
     Route: 048
     Dates: start: 20110622
  2. TARCEVA [Suspect]
     Indication: LUNG NEOPLASM MALIGNANT
     Dosage: 150 MG, UID/QD
     Route: 048
     Dates: start: 20110315, end: 20110522

REACTIONS (2)
  - INTESTINAL OBSTRUCTION [None]
  - DIARRHOEA [None]
